FAERS Safety Report 13778672 (Version 2)
Quarter: 2017Q3

REPORT INFORMATION
  Report Type: Spontaneous
  Country: JP (occurrence: JP)
  Receive Date: 20170721
  Receipt Date: 20170811
  Transmission Date: 20171127
  Serious: Yes (Hospitalization)
  Sender: FDA-Public Use
  Company Number: JP-ROCHE-1966356

PATIENT
  Age: 69 Year
  Sex: Male

DRUGS (9)
  1. AVASTIN [Suspect]
     Active Substance: BEVACIZUMAB
     Indication: COLORECTAL CANCER METASTATIC
     Dosage: 1 SEPERATE DOSE
     Route: 041
  2. PALONOSETRON HYDROCHLORIDE. [Concomitant]
     Active Substance: PALONOSETRON HYDROCHLORIDE
     Route: 042
  3. SCOPOLAMINE BUTYLBROMIDE [Concomitant]
     Active Substance: SCOPOLAMINE
     Route: 042
  4. LEUCOVORIN. [Suspect]
     Active Substance: LEUCOVORIN
     Indication: COLORECTAL CANCER METASTATIC
     Route: 041
  5. IRINOTECAN [Concomitant]
     Active Substance: IRINOTECAN
     Indication: COLORECTAL CANCER METASTATIC
     Route: 041
  6. 5-FU [Concomitant]
     Active Substance: FLUOROURACIL
     Indication: COLORECTAL CANCER METASTATIC
     Route: 041
  7. 5-FU [Concomitant]
     Active Substance: FLUOROURACIL
     Route: 040
  8. DEXAMETHASONE SODIUM PHOSPHATE. [Concomitant]
     Active Substance: DEXAMETHASONE SODIUM PHOSPHATE
     Route: 042
  9. OXALIPLATIN. [Suspect]
     Active Substance: OXALIPLATIN
     Indication: COLORECTAL CANCER METASTATIC
     Route: 041

REACTIONS (1)
  - Interstitial lung disease [Recovered/Resolved]
